FAERS Safety Report 10334455 (Version 1)
Quarter: 2014Q3

REPORT INFORMATION
  Report Type: Spontaneous
  Country: KR (occurrence: KR)
  Receive Date: 20140723
  Receipt Date: 20140723
  Transmission Date: 20150326
  Serious: Yes (Hospitalization)
  Sender: FDA-Public Use
  Company Number: KR-BAYER-2014-105197

PATIENT
  Sex: Male

DRUGS (2)
  1. NEXAVAR [Suspect]
     Active Substance: SORAFENIB
     Dosage: UNK
     Route: 048
     Dates: start: 2014
  2. NEXAVAR [Suspect]
     Active Substance: SORAFENIB
     Dosage: UNK
     Route: 048
     Dates: start: 2014, end: 2014

REACTIONS (9)
  - Lower limb fracture [Recovered/Resolved with Sequelae]
  - Nausea [None]
  - Hypoaesthesia [None]
  - Flatulence [Not Recovered/Not Resolved]
  - Constipation [Recovered/Resolved]
  - Pain [None]
  - Decreased appetite [None]
  - Impaired healing [Recovered/Resolved]
  - Dizziness [None]

NARRATIVE: CASE EVENT DATE: 201405
